FAERS Safety Report 12337593 (Version 1)
Quarter: 2016Q2

REPORT INFORMATION
  Report Type: Spontaneous
  Country: DE (occurrence: DE)
  Receive Date: 20160505
  Receipt Date: 20160505
  Transmission Date: 20160815
  Serious: Yes (Other)
  Sender: FDA-Public Use
  Company Number: DE-AMGEN-DEUSP2016027517

PATIENT
  Age: 39 Year
  Sex: Male
  Weight: 73 kg

DRUGS (16)
  1. OMEPRAZOL [Concomitant]
     Active Substance: OMEPRAZOLE
  2. CETIRIZIN ADGC [Concomitant]
     Dosage: UNK UNK, AS NECESSARY
  3. BICANORM [Concomitant]
     Active Substance: SODIUM BICARBONATE
     Dosage: UNK UNK, QID (ON DIALYSIS DAY 2 TABLETS)
  4. MIMPARA [Suspect]
     Active Substance: CINACALCET HYDROCHLORIDE
     Indication: HYPERPARATHYROIDISM SECONDARY
     Dosage: 30 MG, QD
     Route: 048
     Dates: start: 201308, end: 201602
  5. ARANESP [Concomitant]
     Active Substance: DARBEPOETIN ALFA
  6. CLONIDINE. [Concomitant]
     Active Substance: CLONIDINE
  7. ESPUMISAN [Concomitant]
     Active Substance: DIMETHICONE
     Dosage: UNK UNK, AS NECESSARY
  8. EINSALPHA [Concomitant]
     Dosage: 0.5 MUG, UNK
  9. VIGANTOLETTEN [Concomitant]
     Active Substance: CHOLECALCIFEROL
  10. NEFRO CARNITIN [Concomitant]
     Dosage: UNK UNK, TID
  11. DREISAVIT N [Concomitant]
  12. RESONIUM A [Concomitant]
     Active Substance: SODIUM POLYSTYRENE SULFONATE
     Dosage: 1 ML, QD
  13. ASTONIN H [Concomitant]
     Dosage: UNK UNK, BID
  14. ZINKOROTAT [Concomitant]
     Dosage: UNK UNK, QD
  15. GABAPENTIN. [Concomitant]
     Active Substance: GABAPENTIN
     Dosage: 100 MG, (ONLY AFTER DIALYSIS TREATMENT)
  16. VENOFER [Concomitant]
     Active Substance: IRON SUCROSE

REACTIONS (3)
  - Hypotension [Recovering/Resolving]
  - Polyneuropathy [Unknown]
  - Paraesthesia [Recovered/Resolved]

NARRATIVE: CASE EVENT DATE: 2015
